FAERS Safety Report 6280753-0 (Version None)
Quarter: 2009Q3

REPORT INFORMATION
  Report Type: 
  Country: None (occurrence: None)
  Receive Date: 20090724
  Receipt Date: 20090122
  Transmission Date: 20100115
  Serious: No
  Sender: FDA-Public Use
  Company Number: A0762840A

PATIENT
  Sex: Male

DRUGS (3)
  1. AVANDIA [Suspect]
     Route: 048
  2. METFORMIN HCL [Concomitant]
  3. GLIPIZIDE [Concomitant]

REACTIONS (3)
  - FATIGUE [None]
  - OEDEMA DUE TO CARDIAC DISEASE [None]
  - OEDEMA PERIPHERAL [None]
